FAERS Safety Report 23085895 (Version 1)
Quarter: 2023Q4

REPORT INFORMATION
  Report Type: Report from Study
  Country: US (occurrence: US)
  Receive Date: 20231019
  Receipt Date: 20231019
  Transmission Date: 20240109
  Serious: Yes (Other)
  Sender: FDA-Public Use
  Company Number: US-JAZZ PHARMACEUTICALS-2023-US-016987

PATIENT
  Sex: Female

DRUGS (1)
  1. SODIUM OXYBATE [Suspect]
     Active Substance: SODIUM OXYBATE
     Indication: Sleep attacks
     Dosage: UNK

REACTIONS (8)
  - Transient ischaemic attack [Unknown]
  - Abdominal discomfort [Unknown]
  - Hypersomnia [Unknown]
  - Haematological infection [Unknown]
  - Off label use [Unknown]
  - Product administration interrupted [Unknown]
  - Drug effect less than expected [Unknown]
  - Extra dose administered [Unknown]
